FAERS Safety Report 16134125 (Version 1)
Quarter: 2019Q1

REPORT INFORMATION
  Report Type: Spontaneous
  Country: US (occurrence: US)
  Receive Date: 20190329
  Receipt Date: 20190329
  Transmission Date: 20190418
  Serious: No
  Sender: FDA-Public Use
  Company Number: US-BAYER-2019-062296

PATIENT
  Age: 18 Year
  Sex: Female

DRUGS (1)
  1. KYLEENA [Suspect]
     Active Substance: LEVONORGESTREL
     Dosage: 17.5 MCG/24HR, CONT
     Route: 015
     Dates: start: 20190326

REACTIONS (6)
  - Vaginal discharge [None]
  - Infection [None]
  - Vaginal haemorrhage [None]
  - Nausea [None]
  - Abdominal pain lower [None]
  - Migraine [None]

NARRATIVE: CASE EVENT DATE: 201903
